FAERS Safety Report 20444292 (Version 1)
Quarter: 2022Q1

REPORT INFORMATION
  Report Type: Spontaneous
  Country: CN (occurrence: CN)
  Receive Date: 20220208
  Receipt Date: 20220208
  Transmission Date: 20220423
  Serious: Yes (Hospitalization, Other)
  Sender: FDA-Public Use
  Company Number: CN-PFIZER INC-202200157713

PATIENT
  Age: 75 Year
  Sex: Female
  Weight: 65 kg

DRUGS (7)
  1. MEDROL [Suspect]
     Active Substance: METHYLPREDNISOLONE
     Indication: Arthritis
     Dosage: 4 MG, 1X/DAY
     Route: 048
     Dates: start: 20210115, end: 20220126
  2. HERBALS [Suspect]
     Active Substance: HERBALS
     Indication: Arthritis
     Dosage: 10 MG, 3X/DAY
     Route: 048
     Dates: start: 20210115, end: 20220126
  3. METOPROLOL SUCCINATE [Concomitant]
     Active Substance: METOPROLOL SUCCINATE
     Indication: Hypertension
     Dosage: 47.5 MG, 1X/DAY
     Route: 048
     Dates: start: 20190430, end: 20220126
  4. ROSUVASTATIN CALCIUM [Concomitant]
     Active Substance: ROSUVASTATIN CALCIUM
     Indication: Hypertension
     Dosage: 10 MG, 1X/DAY
     Route: 048
     Dates: start: 20190430, end: 20220126
  5. CLOPIDOGREL BISULFATE [Concomitant]
     Active Substance: CLOPIDOGREL BISULFATE
     Indication: Hypertension
     Dosage: 75 MG, 1X/DAY
     Route: 048
     Dates: start: 20190430, end: 20220126
  6. VALSARTAN [Concomitant]
     Active Substance: VALSARTAN
     Indication: Hypertension
     Dosage: 40 MG, 1X/DAY
     Route: 048
     Dates: start: 20190430, end: 20220126
  7. ALFACALCIDOL [Concomitant]
     Active Substance: ALFACALCIDOL
     Indication: Arthritis
     Dosage: 0.5 UG, 1X/DAY
     Route: 048
     Dates: start: 20210115, end: 20220126

REACTIONS (6)
  - Alopecia [Unknown]
  - Pigmentation disorder [Unknown]
  - Cushingoid [Unknown]
  - Lipohypertrophy [Unknown]
  - Central obesity [Unknown]
  - Oedema peripheral [Unknown]

NARRATIVE: CASE EVENT DATE: 20220111
